FAERS Safety Report 8912840 (Version 2)
Quarter: 2013Q2

REPORT INFORMATION
  Report Type: Spontaneous
  Country: GB (occurrence: GB)
  Receive Date: 20121116
  Receipt Date: 20130528
  Transmission Date: 20140414
  Serious: Yes (Hospitalization, Other)
  Sender: FDA-Public Use
  Company Number: GB-TEVA-369303ISR

PATIENT
  Age: 34 Year
  Sex: Male

DRUGS (6)
  1. AMLODIPINE [Suspect]
     Indication: HYPERTENSION
     Dosage: DOSAGE FORM: UNSPECIFIED
     Route: 065
  2. SIMPONI [Suspect]
     Indication: ANKYLOSING SPONDYLITIS
     Route: 058
  3. SIMPONI [Suspect]
     Dosage: DOSAGE FORM: LIQUID
     Route: 058
     Dates: start: 20120912
  4. PERINDOPRIL [Concomitant]
     Dosage: DOSAGE FORM: UNSPECIFIED
     Route: 065
  5. LANSOPRAZOLE [Concomitant]
     Dosage: DOSAGE FORM: UNSPECIFIED
     Route: 065
  6. NYSTATIN [Concomitant]
     Dosage: DOSAGE FORM: UNSPECIFIED
     Route: 065

REACTIONS (5)
  - Hypertension [Not Recovered/Not Resolved]
  - Pharyngitis [Not Recovered/Not Resolved]
  - Syncope [Not Recovered/Not Resolved]
  - Oral candidiasis [Not Recovered/Not Resolved]
  - Barrett^s oesophagus [Not Recovered/Not Resolved]
